FAERS Safety Report 7023968-6 (Version None)
Quarter: 2010Q4

REPORT INFORMATION
  Report Type: 
  Country: None (occurrence: None)
  Receive Date: 20101001
  Receipt Date: 20100920
  Transmission Date: 20110411
  Serious: Yes (Other)
  Sender: FDA-Public Use
  Company Number: ZA-ELI_LILLY_AND_COMPANY-ZA201009006354

PATIENT
  Sex: Male
  Weight: 65 kg

DRUGS (2)
  1. STRATTERA [Suspect]
     Indication: ATTENTION DEFICIT/HYPERACTIVITY DISORDER
     Dosage: 40 MG, UNK
  2. STRATTERA [Suspect]
     Dosage: 60 MG, DAILY (1/D)
     Route: 048
     Dates: end: 20100912

REACTIONS (5)
  - ALLERGIC SINUSITIS [None]
  - DEPRESSION [None]
  - MOOD ALTERED [None]
  - RASH [None]
  - WEIGHT INCREASED [None]
